FAERS Safety Report 7560209-5 (Version None)
Quarter: 2011Q2

REPORT INFORMATION
  Report Type: 
  Country: None (occurrence: None)
  Receive Date: 20110621
  Receipt Date: 20110613
  Transmission Date: 20111010
  Serious: Yes (Other)
  Sender: FDA-Public Use
  Company Number: B0727204A

PATIENT
  Age: 39 Year
  Sex: Female

DRUGS (1)
  1. VOTRIENT [Suspect]
     Dosage: 800MG PER DAY
     Route: 065
     Dates: start: 20110401, end: 20110525

REACTIONS (4)
  - PLEURAL EFFUSION [None]
  - HEPATIC ENZYME INCREASED [None]
  - SEROSITIS [None]
  - PERICARDIAL EFFUSION [None]
